FAERS Safety Report 9234812 (Version 3)
Quarter: 2013Q2

REPORT INFORMATION
  Report Type: Spontaneous
  Country: US (occurrence: US)
  Receive Date: 20130416
  Receipt Date: 20130528
  Transmission Date: 20140414
  Serious: Yes (Death)
  Sender: FDA-Public Use
  Company Number: US-CELGENEUS-163-21880-13042085

PATIENT
  Age: 65 Year
  Sex: Male
  Weight: 66.9 kg

DRUGS (37)
  1. REVLIMID [Suspect]
     Indication: PLASMA CELL MYELOMA
     Dosage: 10 MILLIGRAM
     Route: 048
     Dates: start: 20121026, end: 20130116
  2. PROCHLORPERAZINE [Concomitant]
     Indication: NAUSEA
     Route: 048
  3. PROCHLORPERAZINE [Concomitant]
     Indication: VOMITING
     Route: 041
  4. LORAZEPAM [Concomitant]
     Indication: NAUSEA
     Dosage: 0.25 - 1MG
     Route: 048
  5. LORAZEPAM [Concomitant]
     Indication: VOMITING
     Dosage: 0.25 - 1MG
     Route: 041
  6. LORAZEPAM [Concomitant]
     Indication: ANXIETY
  7. METOCLOPRAMIDE [Concomitant]
     Indication: NAUSEA
     Route: 041
  8. METOCLOPRAMIDE [Concomitant]
     Indication: VOMITING
  9. DIPHENHYDRAMINE [Concomitant]
     Indication: NAUSEA
     Dosage: 25-50MG
     Route: 041
  10. DIPHENHYDRAMINE [Concomitant]
     Indication: VOMITING
  11. DIPHENHYDRAMINE [Concomitant]
     Indication: PRURITUS
  12. FISH OIL [Concomitant]
     Indication: PRODUCT USED FOR UNKNOWN INDICATION
     Dosage: 2 CAPSULE
     Route: 065
     Dates: start: 20080811
  13. FISH OIL [Concomitant]
     Dosage: 435-880MG
     Route: 065
     Dates: start: 20110401
  14. LEVEMIR FLEXPEN [Concomitant]
     Indication: DIABETES MELLITUS
     Route: 065
     Dates: start: 20100308
  15. LEVEMIR FLEXPEN [Concomitant]
     Dosage: 100
     Route: 065
  16. METFORMIN HCL [Concomitant]
     Indication: DIABETES MELLITUS
     Dosage: 1000 MILLIGRAM
     Route: 048
     Dates: start: 20090916
  17. NAPROXEN [Concomitant]
     Indication: PAIN
     Route: 048
  18. NAPROXEN [Concomitant]
     Dosage: 1500 MILLIGRAM
     Route: 048
  19. PRAVACHOL [Concomitant]
     Indication: HYPERLIPIDAEMIA
     Dosage: 40 MILLIGRAM
     Route: 048
     Dates: start: 20080811
  20. PRAVACHOL [Concomitant]
     Route: 048
     Dates: start: 20110401
  21. ACYCLOVIR [Concomitant]
     Indication: INFECTION PROPHYLAXIS
     Dosage: 800 MILLIGRAM
     Route: 048
  22. ACYCLOVIR [Concomitant]
     Route: 048
     Dates: start: 20130305
  23. HYDROMORPHONE HCL [Concomitant]
     Indication: PAIN
     Dosage: 1 - 3 TABLETS
     Route: 048
     Dates: start: 20120127
  24. PROMETHAZINE HCL [Concomitant]
     Indication: NAUSEA
     Route: 048
     Dates: start: 20120215
  25. PROMETHAZINE HCL [Concomitant]
     Indication: VOMITING
     Dosage: 12.5MG TO 25MG
     Route: 041
  26. HEPARIN [Concomitant]
     Indication: PRODUCT USED FOR UNKNOWN INDICATION
     Dosage: 500 UNITS
  27. ZOMETA [Concomitant]
     Indication: HYPERCALCAEMIA
     Dosage: 4 MILLIGRAM
     Route: 041
     Dates: start: 20090526, end: 20121130
  28. ZOMETA [Concomitant]
     Dosage: 4 MILLIGRAM
     Route: 041
     Dates: start: 201303, end: 2013
  29. CALCIUM [Concomitant]
     Indication: PRODUCT USED FOR UNKNOWN INDICATION
     Route: 065
     Dates: start: 20121130
  30. NORMAL SALINE [Concomitant]
     Indication: DEHYDRATION
     Route: 041
     Dates: start: 20130322
  31. NORMAL SALINE [Concomitant]
     Indication: CENTRAL VENOUS CATHETERISATION
     Dosage: 100 OR 500ML
     Route: 041
  32. NORMAL SALINE [Concomitant]
     Dosage: 1 RO 2 LITERS
     Route: 041
  33. PEPCID [Concomitant]
     Indication: NAUSEA
     Route: 041
  34. PEPCID [Concomitant]
     Indication: DYSPEPSIA
  35. ONDANSETRON [Concomitant]
     Indication: NAUSEA
     Route: 048
  36. ONDANSETRON [Concomitant]
     Indication: VOMITING
     Route: 041
  37. CATHFLO [Concomitant]
     Indication: PRODUCT USED FOR UNKNOWN INDICATION
     Route: 041

REACTIONS (2)
  - Plasma cell myeloma [Fatal]
  - Pneumonia respiratory syncytial viral [Fatal]
